FAERS Safety Report 7626198-X (Version None)
Quarter: 2011Q3

REPORT INFORMATION
  Report Type: 
  Country: None (occurrence: None)
  Receive Date: 20110713
  Receipt Date: 20110627
  Transmission Date: 20111222
  Serious: Yes (Hospitalization)
  Sender: FDA-Public Use
  Company Number: 876036

PATIENT
  Age: 68 Year
  Sex: Male
  Weight: 74 kg

DRUGS (22)
  1. VANCOMYCIN HYDROCHLORIDE [Suspect]
     Indication: PNEUMONITIS
     Dosage: 1250 MG, Q12 HOUR, INTRAVENOUS
     Route: 042
     Dates: start: 20110324, end: 20110328
  2. VANCOMYCIN HYDROCHLORIDE [Suspect]
     Indication: PNEUMONITIS
     Dosage: 1250 MG, Q12 HOURS, INTRAVENOUS
     Route: 042
     Dates: start: 20110324, end: 20110328
  3. LORAZEPAM (LORZEPAM) [Concomitant]
  4. TRAZODONE HCL [Concomitant]
  5. GABAPENTIN [Concomitant]
  6. PHENYLEPHRINE HCL [Concomitant]
  7. ONDANSETRON [Concomitant]
  8. PENTOXIFYLLINE [Concomitant]
  9. ZOLPIDEM [Concomitant]
  10. DILTIAZEM HCL [Concomitant]
  11. DUONEB [Concomitant]
  12. ISOSORBIDE MONONITRATE [Concomitant]
  13. SIMVASTATIN [Concomitant]
  14. VANCOMYCIN HYDROCHLORIDE [Suspect]
     Indication: PNEUMONITIS
     Dosage: 1250 MG, Q12 HOURS, INTRAVENOUS
     Route: 042
     Dates: start: 20110324, end: 20110328
  15. CEFZSOLIN (CEFAZOLIN) [Concomitant]
  16. MIDAZOLAM HCL [Concomitant]
  17. HALOPERIDOL [Concomitant]
  18. VANCOMYCIN HYDROCHLORIDE [Suspect]
     Indication: PNEUMONITIS
     Dosage: 1250 MG, Q12 HOURS, INTRAVENOUS
     Route: 042
     Dates: start: 20110324, end: 20110328
  19. CEFEPAM HYDROCHLORIDE (CEFEPAM HYDROCHLORIDE) [Concomitant]
  20. FAMOTIDINE [Concomitant]
  21. METOPROLOL TARTRATE (METOPROLOL) [Concomitant]
  22. VICODIN [Concomitant]

REACTIONS (3)
  - NEPHROPATHY TOXIC [None]
  - RESPIRATORY FAILURE [None]
  - ARRHYTHMIA [None]
